FAERS Safety Report 16161880 (Version 1)
Quarter: 2019Q2

REPORT INFORMATION
  Report Type: Spontaneous
  Country: FR (occurrence: FR)
  Receive Date: 20190405
  Receipt Date: 20190405
  Transmission Date: 20190711
  Serious: Yes (Other)
  Sender: FDA-Public Use
  Company Number: FR-AUROBINDO-AUR-APL-2019-018035

PATIENT

DRUGS (8)
  1. PRAVASTATIN. [Suspect]
     Active Substance: PRAVASTATIN
     Indication: HYPOCHOLESTEROLAEMIA
     Dosage: 40 MILLIGRAM, DAILY (40 MG, QD)
     Route: 065
  2. CELLCEPT [Suspect]
     Active Substance: MYCOPHENOLATE MOFETIL\MYCOPHENOLATE MOFETIL HYDROCHLORIDE
     Indication: BONE MARROW TRANSPLANT
     Dosage: UNK
     Route: 048
     Dates: start: 201901
  3. LOXEN (NICARDIPINE HYDROCHLORIDE) [Suspect]
     Active Substance: NICARDIPINE HYDROCHLORIDE
     Indication: PRODUCT USED FOR UNKNOWN INDICATION
     Dosage: UNK
     Route: 065
  4. AMOXICILLIN. [Suspect]
     Active Substance: AMOXICILLIN
     Indication: INFECTION
     Dosage: 1000 MILLIGRAM, DAILY ((500 MG, BID))
     Route: 065
     Dates: start: 20190110
  5. THERALITE [Suspect]
     Active Substance: LITHIUM CARBONATE
     Indication: DEPRESSION
     Dosage: 2 DOSAGE FORM, DAILY (2 DF, QD)
     Route: 048
     Dates: start: 2017, end: 20190215
  6. ZELITREX [Suspect]
     Active Substance: VALACYCLOVIR HYDROCHLORIDE
     Indication: VIRAL INFECTION
     Dosage: 1000 MILLIGRAM, DAILY (500 MG, BID)
     Route: 048
     Dates: start: 201806
  7. VICTAN [Suspect]
     Active Substance: ETHYL LOFLAZEPATE
     Indication: DEPRESSION
     Dosage: 3 DOSAGE FORM, DAILY (3 DF, QD (2 DF IN THE MORNING 1 DF IN THE EVENING))
     Route: 048
     Dates: start: 2017, end: 20190215
  8. NEORAL [Suspect]
     Active Substance: CYCLOSPORINE
     Indication: BONE MARROW TRANSPLANT
     Dosage: 280 MILLIGRAM, DAILY (140 MG, BID)
     Route: 042
     Dates: start: 20190111

REACTIONS (13)
  - Movement disorder [Recovered/Resolved]
  - Renal failure [Not Recovered/Not Resolved]
  - Choking [Recovered/Resolved]
  - Incontinence [Recovered/Resolved]
  - Depression [Not Recovered/Not Resolved]
  - Aphasia [Recovered/Resolved]
  - Memory impairment [Unknown]
  - Balance disorder [Not Recovered/Not Resolved]
  - Alexithymia [Not Recovered/Not Resolved]
  - Decreased appetite [Recovered/Resolved]
  - Fatigue [Not Recovered/Not Resolved]
  - Feeding disorder [Unknown]
  - Confusional state [Recovered/Resolved]

NARRATIVE: CASE EVENT DATE: 201901
